FAERS Safety Report 21371216 (Version 1)
Quarter: 2022Q3

REPORT INFORMATION
  Report Type: Spontaneous
  Country: US (occurrence: US)
  Receive Date: 20220923
  Receipt Date: 20220923
  Transmission Date: 20221026
  Serious: No
  Sender: FDA-Public Use
  Company Number: US-PFIZER INC-202201182073

PATIENT
  Age: 62 Year
  Sex: Female

DRUGS (1)
  1. IBRANCE [Suspect]
     Active Substance: PALBOCICLIB
     Dosage: 125 MG, CYCLIC (ONCE A DAY ON DAYS 1 THROUGH 21, OFF 7 DAYS, THEN REPEAT)
     Route: 048
     Dates: start: 20220813

REACTIONS (1)
  - Full blood count abnormal [Unknown]
